FAERS Safety Report 5014649-9 (Version None)
Quarter: 2006Q2

REPORT INFORMATION
  Report Type: 
  Country: None (occurrence: None)
  Receive Date: 20060531
  Receipt Date: 20060413
  Transmission Date: 20061013
  Serious: Yes (Hospitalization, Other)
  Sender: FDA-Public Use
  Company Number: GB-BRISTOL-MYERS SQUIBB COMPANY-13346085

PATIENT
  Age: 46 Year
  Sex: Female
  Weight: 51 kg

DRUGS (3)
  1. BUSPAR [Suspect]
     Indication: ANXIETY
     Route: 048
     Dates: start: 20050501
  2. REBOXETINE [Concomitant]
     Indication: DEPRESSION
     Route: 048
     Dates: start: 20050501
  3. ADALAT [Concomitant]
     Indication: RAYNAUD'S PHENOMENON

REACTIONS (3)
  - COLOSTOMY [None]
  - CONSTIPATION [None]
  - INTESTINAL OBSTRUCTION [None]
